FAERS Safety Report 16559411 (Version 3)
Quarter: 2019Q3

REPORT INFORMATION
  Report Type: Report from Study
  Country: DE (occurrence: DE)
  Receive Date: 20190711
  Receipt Date: 20190930
  Transmission Date: 20191004
  Serious: Yes (Hospitalization, Other)
  Sender: FDA-Public Use
  Company Number: DE-ACTELION-A-CH2018-183970

PATIENT
  Age: 57 Year
  Sex: Female
  Weight: 87 kg

DRUGS (13)
  1. ASPIRIN. [Concomitant]
     Active Substance: ASPIRIN
     Dosage: UNK
     Route: 048
     Dates: start: 20160130
  2. TORASEMIDE [Concomitant]
     Active Substance: TORSEMIDE
     Indication: OEDEMA
     Dosage: UNK
     Route: 048
     Dates: start: 20171201
  3. OMEPRAZOL [Concomitant]
     Active Substance: OMEPRAZOLE
     Indication: GASTRITIS
     Dosage: UNK
     Route: 048
     Dates: start: 20171201
  4. UPTRAVI [Suspect]
     Active Substance: SELEXIPAG
     Indication: PULMONARY ARTERIAL HYPERTENSION
     Dosage: 1200 MCG, QD
     Route: 048
     Dates: start: 20181210, end: 20181213
  5. UPTRAVI [Suspect]
     Active Substance: SELEXIPAG
     Dosage: 400 MCG, QD
     Route: 048
     Dates: start: 20181120, end: 20181203
  6. SPIRONOLACTON [Concomitant]
     Active Substance: SPIRONOLACTONE
     Indication: OEDEMA
     Dosage: UNK
     Route: 048
     Dates: start: 20161102
  7. HYDROCHLOROTHIAZIDE. [Concomitant]
     Active Substance: HYDROCHLOROTHIAZIDE
     Indication: OEDEMA
     Dosage: UNK
     Route: 048
     Dates: start: 20161102
  8. UPTRAVI [Suspect]
     Active Substance: SELEXIPAG
     Dosage: 800 MCG, QD
     Route: 048
     Dates: start: 20181203, end: 20181210
  9. CANDESARTAN. [Concomitant]
     Active Substance: CANDESARTAN
     Indication: LEFT VENTRICULAR END-DIASTOLIC PRESSURE INCREASED
     Dosage: UNK
     Route: 048
     Dates: start: 20160907
  10. SIMVASTATIN. [Concomitant]
     Active Substance: SIMVASTATIN
     Indication: HYPERLIPIDAEMIA
     Dosage: UNK
     Route: 048
     Dates: start: 20160130
  11. REVATIO [Concomitant]
     Active Substance: SILDENAFIL CITRATE
     Dosage: 60 MG, QD
     Dates: start: 20170404
  12. UPTRAVI [Suspect]
     Active Substance: SELEXIPAG
     Dosage: 800 MCG, QD
     Route: 048
     Dates: start: 20181213
  13. L-THYROXINE [Concomitant]
     Active Substance: LEVOTHYROXINE
     Indication: HYPOTHYROIDISM
     Dosage: UNK
     Route: 048
     Dates: start: 20181018

REACTIONS (8)
  - Supraventricular tachyarrhythmia [Recovering/Resolving]
  - Arrhythmia [Unknown]
  - Sinus tachycardia [Recovering/Resolving]
  - Headache [Unknown]
  - Blood creatinine increased [Unknown]
  - Chest pain [Recovering/Resolving]
  - Renal failure [Unknown]
  - Diarrhoea [Unknown]

NARRATIVE: CASE EVENT DATE: 20190301
